FAERS Safety Report 14529739 (Version 1)
Quarter: 2018Q1

REPORT INFORMATION
  Report Type: Spontaneous
  Country: TW (occurrence: TW)
  Receive Date: 20180214
  Receipt Date: 20180214
  Transmission Date: 20180509
  Serious: Yes (Hospitalization)
  Sender: FDA-Public Use
  Company Number: TW-BAYER-2018-022997

PATIENT
  Sex: Male

DRUGS (1)
  1. CIPROXIN 250 MG [Suspect]
     Active Substance: CIPROFLOXACIN
     Indication: URINARY TRACT INFECTION
     Dosage: 250 MG, BID
     Route: 048

REACTIONS (1)
  - Urinary tract infection [Recovered/Resolved]
